FAERS Safety Report 13159461 (Version 1)
Quarter: 2017Q1

REPORT INFORMATION
  Report Type: Spontaneous
  Country: US (occurrence: US)
  Receive Date: 20170127
  Receipt Date: 20170127
  Transmission Date: 20170428
  Serious: Yes (Hospitalization)
  Sender: FDA-Public Use
  Company Number: US-JNJFOC-20170118404

PATIENT
  Sex: Female

DRUGS (4)
  1. TYLENOL WITH CODEINE [Suspect]
     Active Substance: ACETAMINOPHEN\CODEINE PHOSPHATE
     Indication: SPINAL CORD NEOPLASM
     Dosage: HAS NOT TAKEN SINCE TWENTY YEARS AGO
     Route: 048
  2. TYLENOL WITH CODEINE [Suspect]
     Active Substance: ACETAMINOPHEN\CODEINE PHOSPHATE
     Indication: NEOPLASM
     Dosage: HAS NOT TAKEN SINCE TWENTY YEARS AGO
     Route: 048
  3. TYLENOL WITH CODEINE [Suspect]
     Active Substance: ACETAMINOPHEN\CODEINE PHOSPHATE
     Indication: FASCIITIS
     Dosage: HAS NOT TAKEN SINCE TWENTY YEARS AGO
     Route: 048
  4. TYLENOL WITH CODEINE [Suspect]
     Active Substance: ACETAMINOPHEN\CODEINE PHOSPHATE
     Indication: BONE NEOPLASM
     Dosage: HAS NOT TAKEN SINCE TWENTY YEARS AGO
     Route: 048

REACTIONS (2)
  - Product use issue [Unknown]
  - Renal pain [Unknown]
